FAERS Safety Report 6019263-4 (Version None)
Quarter: 2008Q4

REPORT INFORMATION
  Report Type: 
  Country: None (occurrence: None)
  Receive Date: 20081219
  Receipt Date: 20080722
  Transmission Date: 20090506
  Serious: Yes (Hospitalization)
  Sender: FDA-Public Use
  Company Number: US200806006341

PATIENT
  Age: 64 Year
  Sex: Male
  Weight: 60.8 kg

DRUGS (5)
  1. HUMULIN N [Suspect]
     Dates: start: 19980101
  2. HUMULIN N [Suspect]
     Dates: start: 19980101
  3. HUMULIN N [Suspect]
     Dates: start: 19980101
  4. LISINOPRIL [Concomitant]
  5. HYDROCODONE W/APAP (HYDROCODONE, PARACETAMOL) [Concomitant]

REACTIONS (5)
  - ABDOMINAL PAIN UPPER [None]
  - BLOOD GLUCOSE INCREASED [None]
  - DIARRHOEA [None]
  - DRUG INEFFECTIVE [None]
  - NAUSEA [None]
